FAERS Safety Report 19004398 (Version 1)
Quarter: 2021Q1

REPORT INFORMATION
  Report Type: Spontaneous
  Country: US (occurrence: US)
  Receive Date: 20210312
  Receipt Date: 20210312
  Transmission Date: 20210420
  Serious: No
  Sender: FDA-Public Use
  Company Number: US-SA-2021SA076377

PATIENT
  Sex: Female

DRUGS (2)
  1. NPH INSULIN [Suspect]
     Active Substance: INSULIN BEEF
  2. ADMELOG [Suspect]
     Active Substance: INSULIN LISPRO

REACTIONS (1)
  - Exposure during pregnancy [Unknown]
